FAERS Safety Report 6571272-2 (Version None)
Quarter: 2010Q1

REPORT INFORMATION
  Report Type: 
  Country: None (occurrence: None)
  Receive Date: 20100129
  Receipt Date: 20100115
  Transmission Date: 20100710
  Serious: Yes (Disabling, Other)
  Sender: FDA-Public Use
  Company Number: POMP-1000734

PATIENT
  Age: 62 Year
  Sex: Female
  Weight: 52 kg

DRUGS (2)
  1. MYOZYME           (ALGLUCOSIDASE ALFA) POWDER FOR SOLUTION [Suspect]
     Indication: GLYCOGEN STORAGE DISEASE TYPE II
     Dosage: 1100 MG, INTRAVENOUS
     Route: 042
     Dates: start: 20061221, end: 20090930
  2. CANDESARTAN CILEXETIL [Concomitant]

REACTIONS (6)
  - DISEASE PROGRESSION [None]
  - DRUG INEFFECTIVE [None]
  - FATIGUE [None]
  - MUSCULAR WEAKNESS [None]
  - MYALGIA [None]
  - SWOLLEN TONGUE [None]
